FAERS Safety Report 21486558 (Version 1)
Quarter: 2022Q4

REPORT INFORMATION
  Report Type: Spontaneous
  Country: US (occurrence: None)
  Receive Date: 20221019
  Receipt Date: 20221019
  Transmission Date: 20230113
  Serious: No
  Sender: FDA-Public Use
  Company Number: None

PATIENT
  Sex: Female
  Weight: 55.79 kg

DRUGS (7)
  1. IBRANCE [Suspect]
     Active Substance: PALBOCICLIB
     Indication: Breast cancer female
     Dosage: FREQUENCY : DAILY?ROUTE: ORAL - 21 DAYS ON, 7 D OFF?
     Route: 048
  2. IRON [Concomitant]
     Active Substance: IRON
  3. MAGNESIUM OXIDE [Concomitant]
     Active Substance: MAGNESIUM OXIDE
  4. METOPROLOL [Concomitant]
     Active Substance: METOPROLOL
  5. MULTIVITAMINS/MINERALS [Concomitant]
  6. HERBALS\SPIRULINA [Concomitant]
     Active Substance: HERBALS\SPIRULINA
  7. VITAMIN B COMPLEX [Concomitant]
     Active Substance: CYANOCOBALAMIN\DEXPANTHENOL\NIACINAMIDE\PYRIDOXINE HYDROCHLORIDE\RIBOFLAVIN 5^-PHOSPHATE SODIUM\THIA

REACTIONS (3)
  - White blood cell count decreased [None]
  - Epistaxis [None]
  - Dizziness [None]
